FAERS Safety Report 6424693-2 (Version None)
Quarter: 2009Q4

REPORT INFORMATION
  Report Type: 
  Country: None (occurrence: None)
  Receive Date: 20091103
  Receipt Date: 20091020
  Transmission Date: 20100525
  Serious: Yes (Hospitalization)
  Sender: FDA-Public Use
  Company Number: PHHO2009NL13221

PATIENT
  Sex: Female
  Weight: 47 kg

DRUGS (1)
  1. EXELON [Suspect]
     Indication: DEMENTIA

REACTIONS (2)
  - FRACTURE [None]
  - HIP ARTHROPLASTY [None]
